FAERS Safety Report 4431776-5 (Version None)
Quarter: 2004Q3

REPORT INFORMATION
  Report Type: 
  Country: None (occurrence: None)
  Receive Date: 20040818
  Receipt Date: 20040806
  Transmission Date: 20050211
  Serious: Yes (Death)
  Sender: FDA-Public Use
  Company Number: 2004-118429-NL

PATIENT
  Age: 74 Year
  Sex: Male

DRUGS (9)
  1. VECURONIUM BROMIDE [Suspect]
     Indication: INDUCTION OF ANAESTHESIA
     Dosage: 5 MG ONCE INTRAVENOUS (NOS)
     Route: 042
     Dates: start: 20040422, end: 20040422
  2. FENTANYL CITRATE [Suspect]
     Indication: INDUCTION OF ANAESTHESIA
     Dosage: 0.2 ML ONCE EPIDURAL/INTRAVENOUS (NOS)
     Route: 042
     Dates: start: 20040422, end: 20040422
  3. THIAMYLAL SODIUM [Suspect]
     Indication: INDUCTION OF ANAESTHESIA
     Dosage: 425 MG ONCE INTRAVENOUS (NOS)
     Route: 042
     Dates: start: 20040422, end: 20040422
  4. NITROGLYCERIN [Concomitant]
  5. DOPAMINE HCL [Concomitant]
  6. NICORANDIL [Concomitant]
  7. MEPIVACAINE HCL [Suspect]
     Indication: INDUCTION OF ANAESTHESIA
     Dosage: ML ONCE EPIDURAL
     Route: 008
     Dates: start: 20040422, end: 20040422
  8. SEVOFLURANE [Suspect]
     Indication: INDUCTION OF ANAESTHESIA
     Dosage: RESPIRATORY(INHALATION)
     Route: 055
     Dates: start: 20040422, end: 20040422
  9. NITROUS OXIDE [Suspect]
     Indication: INDUCTION OF ANAESTHESIA
     Dosage: RESPIRATORY(INHALATION)
     Route: 055
     Dates: start: 20040422, end: 20040422

REACTIONS (4)
  - BRADYCARDIA [None]
  - CARDIAC ARREST [None]
  - PNEUMONIA [None]
  - POST PROCEDURAL COMPLICATION [None]
